FAERS Safety Report 7179948-3 (Version None)
Quarter: 2010Q4

REPORT INFORMATION
  Report Type: 
  Country: None (occurrence: None)
  Receive Date: 20101123
  Receipt Date: 20100819
  Transmission Date: 20110411
  Serious: No
  Sender: FDA-Public Use
  Company Number: 016918

PATIENT

DRUGS (2)
  1. CIMZIA [Suspect]
     Indication: CROHN'S DISEASE
     Dosage: (200 MG 1X/2 WEEKS SUBCUTANEOUS), (400 MG 1XMONTH SUBCUTANEOUS)
     Route: 058
     Dates: start: 20090509
  2. CIMZIA [Suspect]

REACTIONS (4)
  - EATING DISORDER [None]
  - FREQUENT BOWEL MOVEMENTS [None]
  - SKIN ULCER [None]
  - STOMATITIS [None]
